FAERS Safety Report 4796267-0 (Version None)
Quarter: 2005Q4

REPORT INFORMATION
  Report Type: 
  Country: None (occurrence: None)
  Receive Date: 20051007
  Receipt Date: 20050928
  Transmission Date: 20060501
  Serious: Yes (Other)
  Sender: FDA-Public Use
  Company Number: 2005135836

PATIENT
  Sex: 0

DRUGS (1)
  1. SOLU-MEROL (METHYLPREDNISOLONE SODIUM SUCCINATE) [Suspect]
     Indication: ILL-DEFINED DISORDER
     Dates: start: 20050901

REACTIONS (3)
  - ACCIDENTAL EXPOSURE [None]
  - LACERATION [None]
  - MEDICAL DEVICE COMPLICATION [None]
